FAERS Safety Report 9463604 (Version 1)
Quarter: 2013Q3

REPORT INFORMATION
  Report Type: Spontaneous
  Country: US (occurrence: None)
  Receive Date: 20130815
  Receipt Date: 20130815
  Transmission Date: 20140515
  Serious: Yes (Other)
  Sender: FDA-Public Use
  Company Number: None

PATIENT
  Age: 84 Year
  Sex: Male

DRUGS (1)
  1. ZYTIGA [Suspect]
     Dosage: 500MG DAILY ORAL
     Route: 048
     Dates: start: 20130718, end: 20130810

REACTIONS (4)
  - Confusional state [None]
  - Gait disturbance [None]
  - Joint swelling [None]
  - Local swelling [None]
